FAERS Safety Report 17753686 (Version 9)
Quarter: 2022Q1

REPORT INFORMATION
  Report Type: Spontaneous
  Country: PL (occurrence: PL)
  Receive Date: 20200507
  Receipt Date: 20220322
  Transmission Date: 20220423
  Serious: Yes (Life-Threatening, Hospitalization, Disabling, Other)
  Sender: FDA-Public Use
  Company Number: PL-GLPHARMA-20.0472

PATIENT
  Age: 32 Year
  Sex: Male

DRUGS (20)
  1. ESCITALOPRAM OXALATE [Interacting]
     Active Substance: ESCITALOPRAM OXALATE
     Indication: Depression
     Dosage: 10 MILLIGRAM, ONCE A DAY (IN THE MORNING)
     Route: 048
  2. ACETAMINOPHEN [Interacting]
     Active Substance: ACETAMINOPHEN
     Indication: Upper respiratory tract infection
     Dosage: UNK
     Route: 065
  3. ACETAMINOPHEN\CHLORPHENIRAMINE MALEATE\PSEUDOEPHEDRINE [Interacting]
     Active Substance: ACETAMINOPHEN\CHLORPHENIRAMINE MALEATE\PSEUDOEPHEDRINE
     Indication: Upper respiratory tract infection
     Dosage: UNK
     Route: 065
  4. ACETAMINOPHEN\CHLORPHENIRAMINE MALEATE [Suspect]
     Active Substance: ACETAMINOPHEN\CHLORPHENIRAMINE MALEATE
     Indication: Upper respiratory tract infection
     Dosage: UNK
     Route: 065
  5. CHLORPHENIRAMINE MALEATE [Interacting]
     Active Substance: CHLORPHENIRAMINE MALEATE
     Indication: Upper respiratory tract infection
     Dosage: UNK
     Route: 065
  6. DEXTROMETHORPHAN HYDROBROMIDE [Interacting]
     Active Substance: DEXTROMETHORPHAN HYDROBROMIDE
     Indication: Antitussive therapy
     Dosage: UNK
     Route: 065
  7. DEXTROMETHORPHAN HYDROBROMIDE [Interacting]
     Active Substance: DEXTROMETHORPHAN HYDROBROMIDE
     Indication: Cough
  8. DEXTROMETHORPHAN HYDROBROMIDE [Interacting]
     Active Substance: DEXTROMETHORPHAN HYDROBROMIDE
     Indication: Viral infection
  9. ESOMEPRAZOLE [Interacting]
     Active Substance: ESOMEPRAZOLE
     Indication: Abdominal pain upper
     Dosage: 40 MILLIGRAM, ONCE A DAY
     Route: 048
  10. ESOMEPRAZOLE [Interacting]
     Active Substance: ESOMEPRAZOLE
     Indication: Abdominal pain
  11. ACETAMINOPHEN\CHLORPHENIRAMINE MALEATE\DEXTROMETHORPHAN HYDROBROMIDE\P [Interacting]
     Active Substance: ACETAMINOPHEN\CHLORPHENIRAMINE MALEATE\DEXTROMETHORPHAN HYDROBROMIDE\PSEUDOEPHEDRINE
     Indication: Upper respiratory tract infection
     Dosage: UNK
     Route: 065
  12. METAMIZOLE [Interacting]
     Active Substance: METAMIZOLE
     Indication: Pyrexia
     Dosage: UNK
     Route: 065
  13. METAMIZOLE [Interacting]
     Active Substance: METAMIZOLE
     Indication: Viral infection
  14. PERAZINE [Interacting]
     Active Substance: PERAZINE
     Indication: Sleep disorder
     Dosage: 50 MILLIGRAM, ONCE A DAY, IN THE EVENING (AT NIGHT) (AT BEDTIME)
     Route: 048
  15. PERAZINE [Interacting]
     Active Substance: PERAZINE
     Indication: Insomnia
  16. PROMETHAZINE [Interacting]
     Active Substance: PROMETHAZINE HYDROCHLORIDE
     Indication: Cough
     Dosage: 150 MILLIGRAM, ONCE A DAY
     Route: 048
  17. PROMETHAZINE [Interacting]
     Active Substance: PROMETHAZINE HYDROCHLORIDE
     Indication: Viral infection
  18. PROMETHAZINE [Interacting]
     Active Substance: PROMETHAZINE HYDROCHLORIDE
     Indication: Antitussive therapy
  19. PSEUDOEPHEDRINE HYDROCHLORIDE [Suspect]
     Active Substance: PSEUDOEPHEDRINE HYDROCHLORIDE
     Indication: Upper respiratory tract infection
     Dosage: UNK
     Route: 065
  20. CYPROHEPTADINE [Concomitant]
     Active Substance: CYPROHEPTADINE
     Indication: Serotonin syndrome
     Dosage: UNK
     Route: 065

REACTIONS (22)
  - Clonus [Recovered/Resolved]
  - Pyrexia [Recovered/Resolved]
  - Serotonin syndrome [Recovered/Resolved]
  - Drug interaction [Recovered/Resolved]
  - Upper respiratory tract infection [Recovered/Resolved]
  - Abdominal pain upper [Recovered/Resolved]
  - Abdominal pain [Recovered/Resolved]
  - Diarrhoea [Recovered/Resolved]
  - Body temperature increased [Recovered/Resolved]
  - Respiratory rate increased [Recovered/Resolved]
  - Restless legs syndrome [Recovered/Resolved]
  - Sedation [Recovered/Resolved]
  - Hypersomnia [Recovered/Resolved]
  - Drug ineffective [Recovered/Resolved]
  - Condition aggravated [Recovered/Resolved]
  - Restlessness [Recovered/Resolved]
  - Hyperhidrosis [Recovered/Resolved]
  - Cough [Recovering/Resolving]
  - Nasal congestion [Recovering/Resolving]
  - Labelled drug-drug interaction medication error [Recovered/Resolved]
  - Medication error [Not Recovered/Not Resolved]
  - Product use in unapproved indication [Unknown]
